FAERS Safety Report 7312026-9 (Version None)
Quarter: 2011Q1

REPORT INFORMATION
  Report Type: 
  Country: None (occurrence: None)
  Receive Date: 20110224
  Receipt Date: 20110216
  Transmission Date: 20110831
  Serious: Yes (Hospitalization, Other)
  Sender: FDA-Public Use
  Company Number: FR-PFIZER INC-FR-WYE-G06421610

PATIENT
  Age: 53 Year
  Sex: Female

DRUGS (6)
  1. PRIMPERAN TAB [Concomitant]
     Dosage: UNK
     Route: 042
  2. OXYNORM [Concomitant]
     Dosage: 20 MG, 1X/DAY
     Route: 042
     Dates: start: 20100530
  3. TAZOCILLINE [Suspect]
     Indication: FEBRILE BONE MARROW APLASIA
     Dosage: 4.0 G, 3X/DAY
     Route: 042
     Dates: start: 20100527, end: 20100531
  4. TRIFLUCAN [Suspect]
     Indication: FEBRILE BONE MARROW APLASIA
     Dosage: 200.0 MG, 1X/DAY
     Route: 042
     Dates: start: 20100527, end: 20100531
  5. ZOVIRAX [Suspect]
     Indication: FEBRILE BONE MARROW APLASIA
     Dosage: 250.0 MG, 3X/DAY
     Route: 042
     Dates: start: 20100527, end: 20100531
  6. NEXIUM [Concomitant]
     Dosage: 40 MG, 1X/DAY
     Route: 042
     Dates: start: 20100531

REACTIONS (4)
  - RASH GENERALISED [None]
  - INJECTION SITE RASH [None]
  - INJECTION SITE PRURITUS [None]
  - ENTEROBACTER BACTERAEMIA [None]
